FAERS Safety Report 15193369 (Version 1)
Quarter: 2018Q3

REPORT INFORMATION
  Report Type: Spontaneous
  Country: US (occurrence: US)
  Receive Date: 20180626
  Receipt Date: 20180626
  Transmission Date: 20181010
  Serious: No
  Sender: FDA-Public Use
  Company Number: None

PATIENT
  Age: 60 Year
  Sex: Male
  Weight: 81.65 kg

DRUGS (1)
  1. TALTZ [Suspect]
     Active Substance: IXEKIZUMAB
     Indication: PSORIASIS
     Dosage: ?          OTHER FREQUENCY:WEEKS 4, 6,;?
     Route: 058
     Dates: start: 20180530

REACTIONS (2)
  - Diarrhoea [None]
  - Gastrointestinal motility disorder [None]

NARRATIVE: CASE EVENT DATE: 201806
